FAERS Safety Report 5649985-6 (Version None)
Quarter: 2008Q1

REPORT INFORMATION
  Report Type: 
  Country: None (occurrence: None)
  Receive Date: 20080131
  Receipt Date: 20071207
  Transmission Date: 20080703
  Serious: No
  Sender: FDA-Public Use
  Company Number: 2007PV028838

PATIENT
  Age: 82 Year
  Sex: Female
  Weight: 80.7 kg

DRUGS (9)
  1. EXENATIDE(EXENATIDE) PEN,DISPOSABLE [Suspect]
     Indication: TYPE 2 DIABETES MELLITUS
     Dosage: SEE IMAGE
     Route: 058
     Dates: start: 20060101, end: 20070201
  2. EXENATIDE(EXENATIDE) PEN,DISPOSABLE [Suspect]
     Indication: TYPE 2 DIABETES MELLITUS
     Dosage: SEE IMAGE
     Route: 058
     Dates: start: 20070119
  3. EXENATIDE(EXENATIDE) PEN,DISPOSABLE [Suspect]
     Indication: TYPE 2 DIABETES MELLITUS
     Dosage: SEE IMAGE
     Route: 058
     Dates: start: 20070901
  4. EXENATIDE(EXENATIDE) PEN,DISPOSABLE [Suspect]
     Route: 058
  5. METFORMIN HCL [Concomitant]
  6. GLIPIZIDE [Concomitant]
  7. PRANDIN /01393601/ (REPAGLINIDE) [Concomitant]
  8. GEMFIBROZIL [Concomitant]
  9. ZETIA [Concomitant]

REACTIONS (12)
  - ASTHENIA [None]
  - BLOOD GLUCOSE DECREASED [None]
  - BLOOD GLUCOSE INCREASED [None]
  - BLOOD INSULIN INCREASED [None]
  - BLOOD TRIGLYCERIDES DECREASED [None]
  - DRUG INEFFECTIVE [None]
  - HYPERHIDROSIS [None]
  - LYMPHADENOPATHY [None]
  - NAUSEA [None]
  - PRESYNCOPE [None]
  - SINUSITIS [None]
  - WEIGHT INCREASED [None]
